FAERS Safety Report 4961056-0 (Version None)
Quarter: 2006Q1

REPORT INFORMATION
  Report Type: 
  Country: None (occurrence: None)
  Receive Date: 20060201
  Receipt Date: 20051115
  Transmission Date: 20060701
  Serious: No
  Sender: FDA-Public Use
  Company Number: 2005PV005363

PATIENT
  Age: 53 Year
  Sex: Female

DRUGS (2)
  1. BYETTA [Suspect]
     Dosage: SEE IMAGE
     Dates: start: 20050701, end: 20051001
  2. BYETTA [Suspect]
     Dosage: SEE IMAGE
     Dates: start: 20051101

REACTIONS (2)
  - INSOMNIA [None]
  - PAIN IN EXTREMITY [None]
